FAERS Safety Report 9232617 (Version 1)
Quarter: 2013Q2

REPORT INFORMATION
  Report Type: Spontaneous
  Country: US (occurrence: None)
  Receive Date: 20130415
  Receipt Date: 20130415
  Transmission Date: 20140414
  Serious: Yes (Other)
  Sender: FDA-Public Use
  Company Number: None

PATIENT
  Age: 62 Year
  Sex: Female
  Weight: 90.4 kg

DRUGS (1)
  1. GAMMAGARD [Suspect]

REACTIONS (5)
  - Skin burning sensation [None]
  - Formication [None]
  - Infusion related reaction [None]
  - Hypersensitivity [None]
  - Product quality issue [None]
